FAERS Safety Report 5208898-4 (Version None)
Quarter: 2007Q1

REPORT INFORMATION
  Report Type: 
  Country: None (occurrence: None)
  Receive Date: 20070116
  Receipt Date: 20070108
  Transmission Date: 20070707
  Serious: Yes (Death, Life-Threatening)
  Sender: FDA-Public Use
  Company Number: FR-AVENTIS-200710051FR

PATIENT
  Age: 53 Year
  Sex: Male

DRUGS (3)
  1. FLAGYL [Suspect]
     Route: 048
     Dates: start: 20061107, end: 20061201
  2. MOXIFLOXACIN HYDROCHLORIDE [Suspect]
     Route: 048
     Dates: start: 20061107, end: 20061201
  3. VFEND [Suspect]
     Route: 048
     Dates: start: 20061113, end: 20061201

REACTIONS (9)
  - CHOLESTASIS [None]
  - CIRCULATORY COLLAPSE [None]
  - COAGULOPATHY [None]
  - HEPATITIS CHOLESTATIC [None]
  - LEUKOCYTOSIS [None]
  - METABOLIC ACIDOSIS [None]
  - PYREXIA [None]
  - RENAL FAILURE [None]
  - SEPSIS [None]
